FAERS Safety Report 12480143 (Version 2)
Quarter: 2016Q3

REPORT INFORMATION
  Report Type: Spontaneous
  Country: US (occurrence: US)
  Receive Date: 20160620
  Receipt Date: 20160712
  Transmission Date: 20161109
  Serious: Yes (Life-Threatening, Hospitalization)
  Sender: FDA-Public Use
  Company Number: US-AUROBINDO-AUR-APL-2016-08040

PATIENT
  Age: 36 Year
  Sex: Female

DRUGS (1)
  1. ACETAMINOPHEN TABLET [Suspect]
     Active Substance: ACETAMINOPHEN
     Indication: PRODUCT USED FOR UNKNOWN INDICATION
     Dosage: 500 MG, INGESTED OF ABOUT 200 PILLS
     Route: 048

REACTIONS (10)
  - Aspartate aminotransferase increased [Recovered/Resolved]
  - Haematemesis [Recovered/Resolved]
  - Intentional overdose [Recovered/Resolved]
  - Abdominal pain [Recovered/Resolved]
  - International normalised ratio increased [Recovered/Resolved]
  - Acidosis [Recovered/Resolved]
  - Lethargy [Recovered/Resolved]
  - Metabolic disorder [None]
  - Toxicity to various agents [Recovered/Resolved]
  - Liver dialysis [None]
